FAERS Safety Report 5965345-2 (Version None)
Quarter: 2008Q4

REPORT INFORMATION
  Report Type: 
  Country: None (occurrence: None)
  Receive Date: 20081119
  Receipt Date: 20080225
  Transmission Date: 20090506
  Serious: Yes (Other)
  Sender: FDA-Public Use
  Company Number: 2008-00218FE

PATIENT
  Age: 22 Year
  Sex: Male

DRUGS (4)
  1. CHORIONIC GONADTROPIN [Suspect]
     Indication: HYPOGONADISM
     Dosage: 4000 IU/3000 IU QW
     Dates: start: 19970101, end: 19970101
  2. CHORIONIC GONADTROPIN [Suspect]
     Indication: HYPOGONADISM
     Dosage: 4000 IU/3000 IU QW
     Dates: start: 19971215, end: 20001201
  3. HMG() [Suspect]
     Indication: HYPOGONADISM
     Dosage: 150 IU QW
     Dates: start: 19971215, end: 20001201
  4. GONADOTROPIN RELEASING HORMONE (GNRH) [Suspect]
     Dosage: 100 MCG

REACTIONS (2)
  - HYPOTHYROIDISM [None]
  - TREATMENT FAILURE [None]
